FAERS Safety Report 24814718 (Version 1)
Quarter: 2025Q1

REPORT INFORMATION
  Report Type: Spontaneous
  Country: FR (occurrence: FR)
  Receive Date: 20250107
  Receipt Date: 20250107
  Transmission Date: 20250409
  Serious: Yes (Hospitalization, Disabling)
  Sender: NOVA LABORATORIES LIMITED
  Company Number: FR-Nova Laboratories Limited-2168522

PATIENT
  Sex: Male
  Weight: 69.00 kg

DRUGS (16)
  1. PURIXAN [Suspect]
     Active Substance: MERCAPTOPURINE
     Indication: Product used for unknown indication
     Dates: start: 20220503
  2. ATRIANCE [Suspect]
     Active Substance: NELARABINE
     Dates: start: 20211216, end: 20220921
  3. METHOTREXATE [Suspect]
     Active Substance: METHOTREXATE
     Dates: start: 20230612
  4. METHOTREXATE [Suspect]
     Active Substance: METHOTREXATE
     Dates: start: 20221004
  5. METHOTREXATE [Suspect]
     Active Substance: METHOTREXATE
     Dates: start: 20220503, end: 20220823
  6. ATRIANCE [Suspect]
     Active Substance: NELARABINE
     Dates: start: 20240207
  7. METHOTREXATE [Concomitant]
     Active Substance: METHOTREXATE
     Dates: start: 20230612
  8. NELARABINE [Concomitant]
     Active Substance: NELARABINE
     Dates: start: 20220529, end: 20220921
  9. VINCRISTINE SULFATE [Concomitant]
     Active Substance: VINCRISTINE SULFATE
     Dates: start: 20220503, end: 20220623
  10. ARACYTIN (CYTARABINE) [Concomitant]
     Dates: start: 20220503, end: 20220823
  11. VINDESINE [Concomitant]
     Active Substance: VINDESINE
     Dates: start: 20220103
  12. PURINETHOL [Concomitant]
     Active Substance: MERCAPTOPURINE
     Dates: start: 20220103
  13. BACTRIM [Concomitant]
     Active Substance: SULFAMETHOXAZOLE\TRIMETHOPRIM
     Dates: start: 20211001
  14. ZELITREX (VALACICLOVIR HYDROCHLORIDE) [Concomitant]
     Dates: start: 20211001
  15. LANSOPRAZOLE [Concomitant]
     Active Substance: LANSOPRAZOLE
     Dates: start: 20211001
  16. PREDNISONE [Concomitant]
     Active Substance: PREDNISONE

REACTIONS (6)
  - Lung disorder [Recovered/Resolved with Sequelae]
  - Paraesthesia [Unknown]
  - Prostatitis Escherichia coli [Recovered/Resolved with Sequelae]
  - Cytomegalovirus infection reactivation [Recovered/Resolved with Sequelae]
  - Pancytopenia [Recovered/Resolved with Sequelae]
  - Spinal cord injury [Recovered/Resolved with Sequelae]

NARRATIVE: CASE EVENT DATE: 20221105
